FAERS Safety Report 5877504-8 (Version None)
Quarter: 2008Q3

REPORT INFORMATION
  Report Type: 
  Country: None (occurrence: None)
  Receive Date: 20080909
  Receipt Date: 20080827
  Transmission Date: 20090109
  Serious: Yes (Life-Threatening, Hospitalization)
  Sender: FDA-Public Use
  Company Number: 2008-03152

PATIENT
  Age: 56 Year
  Sex: Male
  Weight: 74.8 kg

DRUGS (1)
  1. VELCADE [Suspect]
     Indication: MULTIPLE MYELOMA

REACTIONS (6)
  - AMYLOIDOSIS [None]
  - BLISTER [None]
  - ERYTHEMA [None]
  - NEPHROTIC SYNDROME [None]
  - RASH [None]
  - SWELLING FACE [None]
